FAERS Safety Report 13301352 (Version 1)
Quarter: 2017Q1

REPORT INFORMATION
  Report Type: Spontaneous
  Country: US (occurrence: US)
  Receive Date: 20170306
  Receipt Date: 20170306
  Transmission Date: 20170428
  Serious: Yes (Hospitalization, Disabling)
  Sender: FDA-Public Use
  Company Number: None

PATIENT
  Age: 13 Year
  Sex: Male
  Weight: 45 kg

DRUGS (8)
  1. LAMICTAL [Concomitant]
     Active Substance: LAMOTRIGINE
  2. IRON [Concomitant]
     Active Substance: IRON
  3. COD LIVER OIL [Concomitant]
     Active Substance: COD LIVER OIL
  4. FOCALIN [Concomitant]
     Active Substance: DEXMETHYLPHENIDATE HYDROCHLORIDE
  5. PROBIOTICS [Concomitant]
     Active Substance: PROBIOTICS NOS
  6. LUVOX [Concomitant]
     Active Substance: FLUVOXAMINE MALEATE
  7. POLYETHELENE GLYCOL [Suspect]
     Active Substance: POLYETHYLENE GLYCOL 3350
     Indication: CONSTIPATION
     Dosage: ?          QUANTITY:17 GRAMS;?
     Route: 048
  8. VITAMIN C [Concomitant]
     Active Substance: ASCORBIC ACID

REACTIONS (5)
  - Tic [None]
  - Attention deficit/hyperactivity disorder [None]
  - Epilepsy [None]
  - Abnormal behaviour [None]
  - Autism [None]
